FAERS Safety Report 8235403-0 (Version None)
Quarter: 2012Q1

REPORT INFORMATION
  Report Type: 
  Country: None (occurrence: None)
  Receive Date: 20120326
  Receipt Date: 20120316
  Transmission Date: 20120608
  Serious: Yes (Disabling, Other)
  Sender: FDA-Public Use
  Company Number: US-PFIZER INC-2012003499

PATIENT
  Sex: Male

DRUGS (9)
  1. ZOCOR [Concomitant]
  2. ZESTRIL [Concomitant]
  3. NORVASC [Concomitant]
  4. PREDNISONE [Concomitant]
  5. MYFORTIC [Concomitant]
     Dosage: UNK
  6. NEORAL [Concomitant]
     Dosage: UNK
  7. VIAGRA [Suspect]
     Dosage: 100MG AS NEEDED
  8. TIAZAC [Concomitant]
  9. CLONIDINE [Concomitant]

REACTIONS (1)
  - RENAL CANCER METASTATIC [None]
